FAERS Safety Report 6252846-5 (Version None)
Quarter: 2009Q2

REPORT INFORMATION
  Report Type: 
  Country: None (occurrence: None)
  Receive Date: 20090629
  Receipt Date: 20090629
  Transmission Date: 20091009
  Serious: Yes (Hospitalization)
  Sender: FDA-Public Use
  Company Number: None

PATIENT
  Age: 66 Year
  Sex: Female
  Weight: 53.5244 kg

DRUGS (7)
  1. CHLOROPROCAINE HCL [Suspect]
     Indication: EPIDURAL ANAESTHESIA
     Dosage: 20 MLS ONCE EPIDURAL
     Route: 008
     Dates: start: 20090408, end: 20090408
  2. EPHEDRINE [Concomitant]
  3. DECADRON [Concomitant]
  4. ETOMIDATE [Concomitant]
  5. SUCCINYLCHOLINE CHLORIDE [Concomitant]
  6. FENTANYL-100 [Concomitant]
  7. MIDAZOLAM HCL [Concomitant]

REACTIONS (7)
  - CONFUSIONAL STATE [None]
  - FAECAL INCONTINENCE [None]
  - HYPOAESTHESIA [None]
  - MUSCULAR WEAKNESS [None]
  - MYOPATHY [None]
  - RESPIRATORY RATE DECREASED [None]
  - URINARY INCONTINENCE [None]
